FAERS Safety Report 16161517 (Version 1)
Quarter: 2019Q2

REPORT INFORMATION
  Report Type: Spontaneous
  Country: US (occurrence: US)
  Receive Date: 20190405
  Receipt Date: 20190405
  Transmission Date: 20190711
  Serious: No
  Sender: FDA-Public Use
  Company Number: US-ALK-ABELLO A/S-2019AA001154

PATIENT

DRUGS (3)
  1. STAE BULK 555 (FELIS DOMESTICUS) [Suspect]
     Active Substance: FELIS CATUS HAIR
     Indication: PRODUCT USED FOR UNKNOWN INDICATION
  2. TAE BULK 510 [Suspect]
     Active Substance: DERMATOPHAGOIDES FARINAE\DERMATOPHAGOIDES PTERONYSSINUS
     Indication: PRODUCT USED FOR UNKNOWN INDICATION
  3. TAE BULK 553 [Suspect]
     Active Substance: ALLERGENIC EXTRACTS
     Indication: PRODUCT USED FOR UNKNOWN INDICATION

REACTIONS (6)
  - Injection site pruritus [Unknown]
  - Injection site swelling [Unknown]
  - Cough [Unknown]
  - Injection site warmth [Unknown]
  - Pyrexia [Unknown]
  - Injection site erythema [Unknown]
